FAERS Safety Report 5164020-4 (Version None)
Quarter: 2006Q4

REPORT INFORMATION
  Report Type: 
  Country: None (occurrence: None)
  Receive Date: 20061204
  Receipt Date: 20060818
  Transmission Date: 20070319
  Serious: Yes (Hospitalization)
  Sender: FDA-Public Use
  Company Number: FR-BOEHRINGER INGELHEIM PHARMACEUTICALS, INC.-2006-BP-14032YA

PATIENT
  Sex: Male
  Weight: 80 kg

DRUGS (8)
  1. OMIX L.P. [Suspect]
     Route: 048
     Dates: start: 20060215
  2. DRIPTANE [Suspect]
     Route: 048
     Dates: start: 20060215
  3. ARICEPT [Suspect]
     Route: 048
     Dates: start: 20060215, end: 20060511
  4. ACTONEL [Concomitant]
     Route: 065
  5. OROCAL [Concomitant]
     Route: 065
  6. NOOTROPYL [Concomitant]
     Route: 065
  7. HEP-A-MYL [Concomitant]
     Route: 065
  8. MOTILIUM [Concomitant]
     Route: 065

REACTIONS (1)
  - ATRIOVENTRICULAR BLOCK [None]
